FAERS Safety Report 20301664 (Version 1)
Quarter: 2022Q1

REPORT INFORMATION
  Report Type: Report from Study
  Country: SG (occurrence: SG)
  Receive Date: 20220105
  Receipt Date: 20220105
  Transmission Date: 20220424
  Serious: Yes (Hospitalization)
  Sender: FDA-Public Use
  Company Number: SG-NOVARTISPH-NVSC2022SG000475

PATIENT
  Age: 70 Year
  Sex: Male
  Weight: 62.6 kg

DRUGS (17)
  1. TISAGENLECLEUCEL [Suspect]
     Active Substance: TISAGENLECLEUCEL
     Indication: Non-Hodgkin^s lymphoma
     Dosage: 2.016_10E7 CELLS
     Route: 042
     Dates: start: 20201026
  2. IFOSFAMIDE [Suspect]
     Active Substance: IFOSFAMIDE
     Indication: Non-Hodgkin^s lymphoma
     Dosage: 8.5 G, CONTINUOUS INFUSION 24H
     Route: 042
     Dates: start: 20200506
  3. MESNA [Suspect]
     Active Substance: MESNA
     Indication: Non-Hodgkin^s lymphoma
     Dosage: 8.5 G, CONTINUOUS INFUSION 24H
     Route: 042
     Dates: start: 20200506
  4. CARMUSTINE [Suspect]
     Active Substance: CARMUSTINE
     Indication: Non-Hodgkin^s lymphoma
     Dosage: 420 MG, ONCE
     Route: 042
     Dates: start: 20200611
  5. MELPHALAN [Suspect]
     Active Substance: MELPHALAN
     Indication: Non-Hodgkin^s lymphoma
     Dosage: 168 MG, ONCE
     Route: 042
     Dates: start: 20200616
  6. RITUXIMAB [Suspect]
     Active Substance: RITUXIMAB
     Indication: Non-Hodgkin^s lymphoma
     Dosage: 600 MG, ONCE
     Route: 042
     Dates: start: 20200304
  7. CISPLATIN [Suspect]
     Active Substance: CISPLATIN
     Indication: Non-Hodgkin^s lymphoma
     Dosage: 169 MG, ONCE
     Route: 042
     Dates: start: 20200304
  8. CYTARABINE [Suspect]
     Active Substance: CYTARABINE
     Indication: Non-Hodgkin^s lymphoma
     Dosage: 6760 MG, BID
     Route: 042
     Dates: start: 20200305
  9. DEXAMETHASONE [Suspect]
     Active Substance: DEXAMETHASONE
     Indication: Non-Hodgkin^s lymphoma
     Dosage: 160 MG, EVERYDAY
     Route: 042
     Dates: start: 20200304
  10. GEMCITABINE [Suspect]
     Active Substance: GEMCITABINE
     Indication: Non-Hodgkin^s lymphoma
     Dosage: 1700 MG, ONCE
     Route: 042
     Dates: start: 20200325
  11. OXALIPLATIN [Suspect]
     Active Substance: OXALIPLATIN
     Indication: Non-Hodgkin^s lymphoma
     Dosage: 170 MG, ONCE
     Route: 042
     Dates: start: 20200326
  12. ETOPOSIDE [Suspect]
     Active Substance: ETOPOSIDE
     Indication: Non-Hodgkin^s lymphoma
     Dosage: 519 MG, EVERYDAY
     Route: 042
     Dates: start: 20200505
  13. CARBOPLATIN [Suspect]
     Active Substance: CARBOPLATIN
     Indication: Non-Hodgkin^s lymphoma
     Dosage: 250 MG, ONCE
     Route: 042
     Dates: start: 20200506
  14. BENDAMUSTINE [Concomitant]
     Active Substance: BENDAMUSTINE
     Indication: Chemotherapy
     Dosage: 250 MG, EVERYDAY
     Route: 065
     Dates: start: 20200930, end: 20201001
  15. FLUDARABINE [Concomitant]
     Active Substance: FLUDARABINE PHOSPHATE
     Indication: Chemotherapy
     Dosage: 129 MG, EVERYDAY
     Route: 065
     Dates: start: 20201022, end: 20201024
  16. CYCLOPHOSPHAMIDE [Concomitant]
     Active Substance: CYCLOPHOSPHAMIDE
     Indication: Chemotherapy
     Dosage: 1290 MG, EVERYDAY
     Route: 065
     Dates: start: 20201022, end: 20201024
  17. MICONAZOLE [Concomitant]
     Active Substance: MICONAZOLE
     Indication: Antifungal prophylaxis
     Route: 065
     Dates: start: 20200214

REACTIONS (1)
  - Asthenia [Not Recovered/Not Resolved]

NARRATIVE: CASE EVENT DATE: 20211231
